FAERS Safety Report 8246249-1 (Version None)
Quarter: 2012Q1

REPORT INFORMATION
  Report Type: 
  Country: None (occurrence: None)
  Receive Date: 20120328
  Receipt Date: 20120328
  Transmission Date: 20120608
  Serious: Yes (Other)
  Sender: FDA-Public Use
  Company Number: None

PATIENT
  Sex: Male
  Weight: 78.4723 kg

DRUGS (1)
  1. PRADAXA [Suspect]
     Indication: CEREBROVASCULAR ACCIDENT
     Dosage: 1 CAPSULE 2X A DAY
     Dates: start: 20120111

REACTIONS (2)
  - ABDOMINAL PAIN UPPER [None]
  - BLOOD URINE PRESENT [None]
